FAERS Safety Report 6152364-9 (Version None)
Quarter: 2009Q2

REPORT INFORMATION
  Report Type: 
  Country: None (occurrence: None)
  Receive Date: 20090409
  Receipt Date: 20090330
  Transmission Date: 20091009
  Serious: Yes (Death, Hospitalization)
  Sender: FDA-Public Use
  Company Number: 2008AL010734

PATIENT
  Age: 73 Year
  Sex: Female
  Weight: 75.2971 kg

DRUGS (30)
  1. DIGOXIN [Suspect]
     Indication: CARDIAC DISORDER
     Dosage: 0.25MG, DAILY, PO
     Route: 048
  2. POTASSIUM CHLORIDE [Concomitant]
  3. METOPROLOL SUCCINATE [Concomitant]
  4. ARIMIDEX [Concomitant]
  5. DIOVAN [Concomitant]
  6. DYAZIDE [Concomitant]
  7. ASPIRIN [Concomitant]
  8. LASIX [Concomitant]
  9. COREG [Concomitant]
  10. SPIRONOLACTONE [Concomitant]
  11. ALLOPURINOL [Concomitant]
  12. FEOSOL [Concomitant]
  13. AMIODARONE [Concomitant]
  14. ALDACTONE [Concomitant]
  15. FERROUS SULFATE TAB [Concomitant]
  16. TRIAMTERENE [Concomitant]
  17. DESOXIMETASONE [Concomitant]
  18. SULFAMETHEXAZOLE [Concomitant]
  19. KLOR-CON [Concomitant]
  20. NASACORT [Concomitant]
  21. TOBRADEX [Concomitant]
  22. CIPROFLOXACIN [Concomitant]
  23. PHENAZOPYRIDINE HCL TAB [Concomitant]
  24. NITROFURANTOIN [Concomitant]
  25. CELEBREX [Concomitant]
  26. CARVEDILOL [Concomitant]
  27. METOLAZONE [Concomitant]
  28. LISINOPRIL [Concomitant]
  29. NEXIUM [Concomitant]
  30. PREDNISONE [Concomitant]

REACTIONS (52)
  - ANXIETY [None]
  - ARTERIOSCLEROSIS CORONARY ARTERY [None]
  - ATRIOVENTRICULAR BLOCK COMPLETE [None]
  - BLOOD PRESSURE DECREASED [None]
  - BRAIN NATRIURETIC PEPTIDE INCREASED [None]
  - BUNDLE BRANCH BLOCK RIGHT [None]
  - CARDIAC FAILURE CONGESTIVE [None]
  - CARDIAC MURMUR [None]
  - CARDIOACTIVE DRUG LEVEL INCREASED [None]
  - CARDIOPULMONARY FAILURE [None]
  - CELLULITIS [None]
  - CONDITION AGGRAVATED [None]
  - CONSTIPATION [None]
  - CREPITATIONS [None]
  - CYANOSIS [None]
  - DECREASED APPETITE [None]
  - DEHYDRATION [None]
  - DIALYSIS [None]
  - DISEASE COMPLICATION [None]
  - ERYTHEMA [None]
  - EXERCISE TOLERANCE DECREASED [None]
  - FALL [None]
  - GASTROENTERITIS [None]
  - HYPERTENSION [None]
  - INFLUENZA [None]
  - INJURY [None]
  - LEFT VENTRICULAR DYSFUNCTION [None]
  - LOWER LIMB FRACTURE [None]
  - MITRAL VALVE INCOMPETENCE [None]
  - OSTEOMYELITIS [None]
  - PEDAL PULSE DECREASED [None]
  - PIGMENTATION DISORDER [None]
  - PLATELET COUNT DECREASED [None]
  - PLEURAL EFFUSION [None]
  - POLYCYTHAEMIA [None]
  - PORTAL HYPERTENSION [None]
  - PULSE ABNORMAL [None]
  - QRS AXIS ABNORMAL [None]
  - RENAL CYST [None]
  - RENAL FAILURE ACUTE [None]
  - RENAL FAILURE CHRONIC [None]
  - RESTLESSNESS [None]
  - SECRETION DISCHARGE [None]
  - STAPHYLOCOCCAL INFECTION [None]
  - SYNCOPE [None]
  - THERAPEUTIC AGENT TOXICITY [None]
  - TONGUE COATED [None]
  - TRICUSPID VALVE INCOMPETENCE [None]
  - TROPONIN INCREASED [None]
  - WEIGHT DECREASED [None]
  - WEIGHT INCREASED [None]
  - XANTHOPSIA [None]
